FAERS Safety Report 20356449 (Version 15)
Quarter: 2022Q4

REPORT INFORMATION
  Report Type: Report from Study
  Country: JP (occurrence: JP)
  Receive Date: 20220120
  Receipt Date: 20221208
  Transmission Date: 20230112
  Serious: Yes (Hospitalization, Other)
  Sender: FDA-Public Use
  Company Number: JP-ABBVIE-20K-087-3615204-00

PATIENT
  Age: 69 Year
  Sex: Male

DRUGS (24)
  1. SKYRIZI [Suspect]
     Active Substance: RISANKIZUMAB-RZAA
     Indication: Psoriasis
     Dosage: 150 MG/MONTH
     Route: 058
     Dates: start: 20201002, end: 20201030
  2. SKYRIZI [Suspect]
     Active Substance: RISANKIZUMAB-RZAA
     Route: 058
     Dates: start: 20201030, end: 20210108
  3. BACLOFEN [Suspect]
     Active Substance: BACLOFEN
     Indication: Product used for unknown indication
     Route: 065
  4. BETAMETHASONE BUTYRATE PROPIONATE [Concomitant]
     Active Substance: BETAMETHASONE BUTYRATE PROPIONATE
     Indication: Psoriasis
     Route: 061
     Dates: start: 20110603, end: 20201002
  5. MAXACALCITOL [Concomitant]
     Active Substance: MAXACALCITOL
     Indication: Psoriasis
     Route: 061
     Dates: start: 20190903, end: 20201002
  6. MAXACALCITOL [Concomitant]
     Active Substance: MAXACALCITOL
     Indication: Psoriasis
     Route: 061
     Dates: start: 20210312
  7. GLIMEPIRIDE [Concomitant]
     Active Substance: GLIMEPIRIDE
     Indication: Diabetes mellitus
     Route: 048
     Dates: start: 2017
  8. INISYNC COMBINATION TABLETS ALOGLIPTIN BENZOATE [Concomitant]
     Indication: Diabetes mellitus
     Route: 048
     Dates: start: 2017
  9. Red blood cells leukocytes reduced NISSEKI [Concomitant]
     Indication: Product used for unknown indication
     Route: 042
     Dates: start: 20220326, end: 20220326
  10. METFORMIN HYDROCHLORIDE [Concomitant]
     Active Substance: METFORMIN HYDROCHLORIDE
     Indication: Diabetes mellitus management
     Route: 048
     Dates: start: 2017
  11. METFORMIN HYDROCHLORIDE [Concomitant]
     Active Substance: METFORMIN HYDROCHLORIDE
     Indication: Diabetes mellitus management
     Dosage: ONCE
     Route: 048
  12. ASPIRIN [Concomitant]
     Active Substance: ASPIRIN
     Indication: Angina pectoris
     Route: 048
     Dates: start: 2014
  13. CLOPIDOGREL BISULFATE [Concomitant]
     Active Substance: CLOPIDOGREL BISULFATE
     Indication: Angina pectoris
     Route: 048
     Dates: start: 2014
  14. LANSOPRAZOLE [Concomitant]
     Active Substance: LANSOPRAZOLE
     Indication: Prophylaxis against gastrointestinal ulcer
     Route: 048
     Dates: start: 2017
  15. OLMESARTAN MEDOXOMIL [Concomitant]
     Active Substance: OLMESARTAN MEDOXOMIL
     Indication: Hypertension
     Route: 048
     Dates: start: 2018
  16. HEPARINOID [Concomitant]
     Indication: Product used for unknown indication
     Dosage: PRN
     Route: 061
     Dates: start: 20201211
  17. CERTOLIZUMAB PEGOL [Concomitant]
     Active Substance: CERTOLIZUMAB PEGOL
     Indication: Product used for unknown indication
     Dates: start: 20210108
  18. ALPROSTADIL [Concomitant]
     Active Substance: ALPROSTADIL
     Indication: Peripheral arterial occlusive disease
     Dosage: ONCE A DAY
     Route: 042
     Dates: start: 20220326, end: 20220405
  19. IXEKIZUMAB [Concomitant]
     Active Substance: IXEKIZUMAB
     Indication: Product used for unknown indication
     Dosage: 160 MG/ 2 WEEKS
     Dates: start: 20210305, end: 20220323
  20. IXEKIZUMAB [Concomitant]
     Active Substance: IXEKIZUMAB
     Indication: Product used for unknown indication
     Dosage: 80 MG/MONTH
     Dates: start: 20210702
  21. IXEKIZUMAB [Concomitant]
     Active Substance: IXEKIZUMAB
     Indication: Product used for unknown indication
     Dosage: 80 MG/ 2 WEEKS
     Dates: start: 20210323, end: 20210604
  22. AMLODIPINE BESYLATE [Concomitant]
     Active Substance: AMLODIPINE BESYLATE
     Indication: Blood pressure management
     Dosage: ONCE A DAY
     Route: 048
     Dates: start: 20220327
  23. MOVIPREP [Concomitant]
     Active Substance: ASCORBIC ACID\POLYETHYLENE GLYCOL 3350\POTASSIUM CHLORIDE\SODIUM ASCORBATE\SODIUM CHLORIDE\SODIUM SU
     Indication: Gastrointestinal disorder therapy
     Dosage: ONCE
     Dates: start: 20210708, end: 20210708
  24. MAGNESIUM OXIDE [Concomitant]
     Active Substance: MAGNESIUM OXIDE
     Indication: Constipation prophylaxis
     Dosage: FREQUENCY TEXT: PRN
     Dates: start: 20210709, end: 20210722

REACTIONS (16)
  - Skin erosion [Recovered/Resolved]
  - Colorectal adenoma [Recovered/Resolved]
  - Wound infection [Recovered/Resolved]
  - Peripheral arterial occlusive disease [Recovering/Resolving]
  - Puncture site infection [Not Recovered/Not Resolved]
  - Psoriatic arthropathy [Unknown]
  - Pruritus [Recovered/Resolved]
  - Hyperkeratosis [Recovered/Resolved]
  - Toe amputation [Recovered/Resolved]
  - Cellulitis [Recovered/Resolved]
  - Skin ulcer [Recovered/Resolved]
  - Skin ulcer [Recovered/Resolved]
  - Skin ulcer [Not Recovered/Not Resolved]
  - Drug eruption [Recovered/Resolved]
  - Skin ulcer [Not Recovered/Not Resolved]
  - Decubitus ulcer [Recovered/Resolved]

NARRATIVE: CASE EVENT DATE: 20201006
